FAERS Safety Report 6513030-0 (Version None)
Quarter: 2009Q4

REPORT INFORMATION
  Report Type: 
  Country: None (occurrence: None)
  Receive Date: 20091222
  Receipt Date: 20091222
  Transmission Date: 20100525
  Serious: Yes (Other)
  Sender: FDA-Public Use
  Company Number: None

PATIENT
  Age: 23 Year
  Sex: Male
  Weight: 156.491 kg

DRUGS (2)
  1. CARBAMAZEPINE [Suspect]
     Indication: CONVULSION PROPHYLAXIS
     Dosage: 200 B.I.D. PO, APPROXIMATELY 2 YEARS
     Route: 048
  2. CARBAMAZEPINE [Suspect]
     Indication: EPILEPSY
     Dosage: 200 B.I.D. PO, APPROXIMATELY 2 YEARS
     Route: 048

REACTIONS (5)
  - DISORIENTATION [None]
  - DIZZINESS [None]
  - NAUSEA [None]
  - VERTIGO [None]
  - VOMITING [None]
